FAERS Safety Report 26179267 (Version 1)
Quarter: 2025Q4

REPORT INFORMATION
  Report Type: Spontaneous
  Country: EU (occurrence: EU)
  Receive Date: 20251219
  Receipt Date: 20251219
  Transmission Date: 20260118
  Serious: Yes (Death, Other)
  Sender: TAKEDA
  Company Number: EU-INCYTE CORPORATION-2025IN013294

PATIENT
  Sex: Female

DRUGS (1)
  1. ICLUSIG [Suspect]
     Active Substance: PONATINIB HYDROCHLORIDE
     Indication: Chronic myeloid leukaemia
     Dosage: 45 MILLIGRAM, QD
     Dates: start: 2015, end: 2016

REACTIONS (2)
  - Chronic myeloid leukaemia transformation [Fatal]
  - Rash [Unknown]

NARRATIVE: CASE EVENT DATE: 20160101
